FAERS Safety Report 9386265 (Version 1)
Quarter: 2013Q3

REPORT INFORMATION
  Report Type: Spontaneous
  Country: DK (occurrence: DK)
  Receive Date: 20130708
  Receipt Date: 20130708
  Transmission Date: 20140515
  Serious: Yes (Disabling)
  Sender: FDA-Public Use
  Company Number: DK-009507513-1307DNK000787

PATIENT
  Age: 80 Year
  Sex: Female
  Weight: 40 kg

DRUGS (1)
  1. TRILAFON DECANOATE [Suspect]
     Indication: SCHIZOPHRENIA, PARANOID TYPE
     Dosage: DOSE: 0-162,8 MG/4 WEEK. STRENGTH 108,2 MG/ML
     Route: 030
     Dates: start: 19780101, end: 20121129

REACTIONS (4)
  - Toe walking [Not Recovered/Not Resolved]
  - Dystonia [Not Recovered/Not Resolved]
  - Dysarthria [Not Recovered/Not Resolved]
  - Dysarthria [Not Recovered/Not Resolved]
